FAERS Safety Report 25007796 (Version 3)
Quarter: 2025Q2

REPORT INFORMATION
  Report Type: Spontaneous
  Country: US (occurrence: US)
  Receive Date: 20250225
  Receipt Date: 20250401
  Transmission Date: 20250717
  Serious: Yes (Other)
  Sender: NOVO NORDISK
  Company Number: US-NOVOPROD-1370955

PATIENT
  Age: 64 Year
  Sex: Male

DRUGS (2)
  1. TRESIBA [Suspect]
     Active Substance: INSULIN DEGLUDEC
     Indication: Type 2 diabetes mellitus
     Dosage: 12 IU, QD
     Route: 058
     Dates: start: 2024
  2. NOVOLOG [Concomitant]
     Active Substance: INSULIN ASPART
     Indication: Type 2 diabetes mellitus
     Dosage: 5 IU, QD
     Dates: start: 202412

REACTIONS (6)
  - Blood glucose increased [Not Recovered/Not Resolved]
  - Device failure [Unknown]
  - Device malfunction [Unknown]
  - Drug dose omission by device [Unknown]
  - Wrong technique in product usage process [Unknown]
  - Product communication issue [Unknown]

NARRATIVE: CASE EVENT DATE: 20240101
